FAERS Safety Report 24217662 (Version 2)
Quarter: 2025Q1

REPORT INFORMATION
  Report Type: Spontaneous
  Country: US (occurrence: US)
  Receive Date: 20240816
  Receipt Date: 20250113
  Transmission Date: 20250409
  Serious: No
  Sender: BIOCON
  Company Number: US-MIMS-BCONMC-5361

PATIENT

DRUGS (4)
  1. SEMGLEE (INSULIN GLARGINE) [Suspect]
     Active Substance: INSULIN GLARGINE
     Indication: Type 2 diabetes mellitus
     Dosage: 50 UNITS/ML, QID
     Route: 058
  2. SEMGLEE (INSULIN GLARGINE) [Suspect]
     Active Substance: INSULIN GLARGINE
     Dosage: 50 UNITS/ML, QD
     Route: 058
  3. SEMGLEE (INSULIN GLARGINE) [Suspect]
     Active Substance: INSULIN GLARGINE
     Dosage: 50 UNITS/ML, QD
     Route: 065
  4. SEMGLEE (INSULIN GLARGINE) [Suspect]
     Active Substance: INSULIN GLARGINE
     Dosage: 50 UNITS/ML, QD
     Route: 065

REACTIONS (4)
  - Device mechanical issue [Unknown]
  - Dose calculation error [Unknown]
  - Device malfunction [Unknown]
  - Device failure [Unknown]
